FAERS Safety Report 25660460 (Version 2)
Quarter: 2025Q3

REPORT INFORMATION
  Report Type: Spontaneous
  Country: EU (occurrence: EU)
  Receive Date: 20250808
  Receipt Date: 20250813
  Transmission Date: 20251021
  Serious: Yes (Other)
  Sender: EXELIXIS
  Company Number: EU-IPSEN Group, Research and Development-2025-19108

PATIENT
  Age: 65 Year
  Sex: Male

DRUGS (14)
  1. CABOMETYX [Suspect]
     Active Substance: CABOZANTINIB S-MALATE
     Indication: Clear cell renal cell carcinoma
     Dosage: 40 MG, QD
     Dates: start: 20250115
  2. NIVOLUMAB [Suspect]
     Active Substance: NIVOLUMAB
     Indication: Clear cell renal cell carcinoma
     Dosage: IV INFUSION EVERY 2 WEEKS
     Dates: start: 20250115
  3. NIVOLUMAB [Suspect]
     Active Substance: NIVOLUMAB
     Dates: start: 202504
  4. DENOSUMAB [Concomitant]
     Active Substance: DENOSUMAB
     Dates: start: 202504
  5. METOPROLOL [Concomitant]
     Active Substance: METOPROLOL
  6. RIVAROXABAN [Concomitant]
     Active Substance: RIVAROXABAN
  7. DAPAGLIFLOZIN [Concomitant]
     Active Substance: DAPAGLIFLOZIN
  8. ROSUVASTATIN [Concomitant]
     Active Substance: ROSUVASTATIN
  9. UNSPECIFIED INGREDIENT [Concomitant]
     Active Substance: UNSPECIFIED INGREDIENT
  10. ALLOPURINOL [Concomitant]
     Active Substance: ALLOPURINOL
  11. TAMSULOSIN [Concomitant]
     Active Substance: TAMSULOSIN
  12. INSULIN NOS [Concomitant]
     Active Substance: INSULIN NOS
  13. METFORMIN [Concomitant]
     Active Substance: METFORMIN HYDROCHLORIDE
  14. formoterol (inhaled) [Concomitant]

REACTIONS (1)
  - Hepatotoxicity [Recovered/Resolved]

NARRATIVE: CASE EVENT DATE: 20250129
